FAERS Safety Report 19840725 (Version 3)
Quarter: 2022Q2

REPORT INFORMATION
  Report Type: Spontaneous
  Country: US (occurrence: US)
  Receive Date: 20210916
  Receipt Date: 20220518
  Transmission Date: 20220721
  Serious: No
  Sender: FDA-Public Use
  Company Number: US-PFIZER INC-2021449970

PATIENT
  Age: 57 Year
  Sex: Female

DRUGS (2)
  1. XELJANZ XR [Suspect]
     Active Substance: TOFACITINIB CITRATE
     Dosage: 11 MG
     Dates: start: 20210315
  2. XELJANZ XR [Suspect]
     Active Substance: TOFACITINIB CITRATE
     Dosage: 11 MG
     Dates: start: 20210612

REACTIONS (6)
  - Product dose omission issue [Unknown]
  - Memory impairment [Unknown]
  - Sinusitis [Unknown]
  - Arthralgia [Unknown]
  - Dyspepsia [Unknown]
  - Dysuria [Unknown]

NARRATIVE: CASE EVENT DATE: 20210101
